FAERS Safety Report 16057098 (Version 2)
Quarter: 2019Q2

REPORT INFORMATION
  Report Type: Spontaneous
  Country: US (occurrence: US)
  Receive Date: 20190311
  Receipt Date: 20190528
  Transmission Date: 20190711
  Serious: Yes (Other)
  Sender: FDA-Public Use
  Company Number: US-TAKEDA-2019TUS012215

PATIENT

DRUGS (13)
  1. NEXIUM [Suspect]
     Active Substance: ESOMEPRAZOLE MAGNESIUM
     Indication: DYSPEPSIA
     Dosage: 40 MILLIGRAM, QD
     Route: 048
  2. PANTOPRAZOLE [Suspect]
     Active Substance: PANTOPRAZOLE
     Indication: DYSPEPSIA
     Dosage: 20 MILLIGRAM, QD
     Route: 048
  3. ASPIRIN                            /00002701/ [Concomitant]
     Active Substance: ASPIRIN
     Indication: PAIN
     Dosage: UNK
  4. ZANTAC 75 [Concomitant]
     Active Substance: RANITIDINE HYDROCHLORIDE
     Indication: PRODUCT USED FOR UNKNOWN INDICATION
  5. OMEPRAZOLE. [Suspect]
     Active Substance: OMEPRAZOLE
     Indication: DYSPEPSIA
     Dosage: 15 MILLIGRAM, QD
     Route: 048
  6. FAMOTIDINE. [Concomitant]
     Active Substance: FAMOTIDINE
     Indication: PRODUCT USED FOR UNKNOWN INDICATION
  7. PEPCID                             /00305201/ [Concomitant]
     Active Substance: ALUMINUM HYDROXIDE\MAGNESIUM CARBONATE
     Indication: PRODUCT USED FOR UNKNOWN INDICATION
  8. PEPTO-BISMOL [Concomitant]
     Active Substance: BISMUTH SUBSALICYLATE
     Indication: ANTACID THERAPY
  9. MAALOX ANTACID [Concomitant]
     Active Substance: ALUMINUM HYDROXIDE\DIMETHICONE\MAGNESIUM HYDROXIDE
     Indication: ANTACID THERAPY
  10. PREVACID 24 HR [Suspect]
     Active Substance: LANSOPRAZOLE
     Indication: DYSPEPSIA
     Dosage: 15 MILLIGRAM, QD
     Route: 048
  11. PREVACID [Suspect]
     Active Substance: LANSOPRAZOLE
     Indication: DYSPEPSIA
     Dosage: 40 MILLIGRAM, QD
     Route: 048
     Dates: start: 19950510, end: 19961201
  12. PEPCID AC [Concomitant]
     Active Substance: FAMOTIDINE
     Indication: PRODUCT USED FOR UNKNOWN INDICATION
  13. PRILOSEC [Suspect]
     Active Substance: OMEPRAZOLE MAGNESIUM
     Indication: GASTROOESOPHAGEAL REFLUX DISEASE
     Dosage: 40 MILLIGRAM, QD
     Route: 048
     Dates: start: 19950101, end: 20101201

REACTIONS (1)
  - Renal failure [Not Recovered/Not Resolved]

NARRATIVE: CASE EVENT DATE: 20130601
